FAERS Safety Report 22225365 (Version 1)
Quarter: 2023Q2

REPORT INFORMATION
  Report Type: Spontaneous
  Country: CN (occurrence: CN)
  Receive Date: 20230418
  Receipt Date: 20230418
  Transmission Date: 20230722
  Serious: Yes (Hospitalization, Other)
  Sender: FDA-Public Use
  Company Number: CN-009507513-2304CHN006520

PATIENT
  Age: 81 Year
  Sex: Female
  Weight: 52 kg

DRUGS (2)
  1. INVANZ [Suspect]
     Active Substance: ERTAPENEM SODIUM
     Indication: Urinary tract infection
     Dosage: 1 GRAM, BID
     Route: 041
     Dates: start: 20230311, end: 20230317
  2. SODIUM CHLORIDE [Concomitant]
     Active Substance: SODIUM CHLORIDE
     Indication: Medication dilution
     Dosage: 100 MILLILITER, BID (MANUFACTURER: SHIJIAZHUANG NO.4 PHARMACEUTICAL CO. LTD)
     Route: 041
     Dates: start: 20230311, end: 20230317

REACTIONS (6)
  - Delirium [Recovering/Resolving]
  - Hallucinations, mixed [Recovering/Resolving]
  - Trance [Recovering/Resolving]
  - Speech disorder [Recovering/Resolving]
  - Dysphoria [Recovering/Resolving]
  - Incorrect dose administered [Unknown]

NARRATIVE: CASE EVENT DATE: 20230311
